FAERS Safety Report 16879263 (Version 2)
Quarter: 2019Q4

REPORT INFORMATION
  Report Type: Spontaneous
  Country: US (occurrence: US)
  Receive Date: 20191003
  Receipt Date: 20191031
  Transmission Date: 20200122
  Serious: No
  Sender: FDA-Public Use
  Company Number: US-ASTRAZENECA-2019SF40144

PATIENT
  Age: 26510 Day
  Sex: Female

DRUGS (1)
  1. TAGRISSO [Suspect]
     Active Substance: OSIMERTINIB
     Indication: LUNG NEOPLASM MALIGNANT
     Route: 048
     Dates: start: 201811

REACTIONS (3)
  - Product dose omission [Unknown]
  - Nasopharyngitis [Unknown]
  - Product distribution issue [Unknown]

NARRATIVE: CASE EVENT DATE: 20190929
